FAERS Safety Report 14216723 (Version 1)
Quarter: 2017Q4

REPORT INFORMATION
  Report Type: Spontaneous
  Country: GB (occurrence: GB)
  Receive Date: 20171122
  Receipt Date: 20171122
  Transmission Date: 20180321
  Serious: Yes (Hospitalization, Other)
  Sender: FDA-Public Use
  Company Number: GB-BAXTER-2017BAX038953

PATIENT
  Age: 40 Year
  Sex: Female

DRUGS (2)
  1. DIANEAL [Suspect]
     Active Substance: CALCIUM CHLORIDE\DEXTROSE\MAGNESIUM CHLORIDE\SODIUM CHLORIDE\SODIUM LACTATE
     Indication: PERITONEAL DIALYSIS
     Route: 033
     Dates: end: 201710
  2. NUTRINEAL [Suspect]
     Active Substance: AMINO ACIDS\CALCIUM CHLORIDE\MAGNESIUM CHLORIDE\SODIUM CHLORIDE\SODIUM LACTATE
     Indication: PERITONEAL DIALYSIS
     Route: 033
     Dates: end: 201710

REACTIONS (7)
  - Catheter site discharge [Recovered/Resolved]
  - Peritonitis [Recovered/Resolved]
  - Device connection issue [Recovered/Resolved]
  - Catheter site infection [Recovered/Resolved]
  - Hyperglycaemia [Unknown]
  - Renal impairment [Unknown]
  - Apparent death [Unknown]

NARRATIVE: CASE EVENT DATE: 201711
